FAERS Safety Report 6697440-7 (Version None)
Quarter: 2010Q2

REPORT INFORMATION
  Report Type: 
  Country: None (occurrence: None)
  Receive Date: 20100426
  Receipt Date: 20100421
  Transmission Date: 20101027
  Serious: Yes (Death, Life-Threatening, Hospitalization, Other)
  Sender: FDA-Public Use
  Company Number: DE-CELGENEUS-062-21880-10011256

PATIENT
  Age: 44 Year
  Sex: Male
  Weight: 69 kg

DRUGS (6)
  1. REVLIMID [Suspect]
     Route: 048
     Dates: start: 20091211, end: 20091231
  2. FORTECORTIN [Concomitant]
     Route: 048
     Dates: start: 20091211
  3. ASPIRIN [Concomitant]
     Indication: THROMBOSIS PROPHYLAXIS
     Route: 048
     Dates: start: 20091211, end: 20091231
  4. MST [Concomitant]
     Indication: HODGKIN'S DISEASE
     Route: 065
     Dates: start: 20091202
  5. MST [Concomitant]
     Route: 048
     Dates: start: 20091211
  6. FRAXIPARINE [Concomitant]
     Indication: THROMBOSIS
     Route: 065
     Dates: start: 20080601

REACTIONS (5)
  - ASTHENIA [None]
  - DEEP VEIN THROMBOSIS [None]
  - DISEASE PROGRESSION [None]
  - PULMONARY EMBOLISM [None]
  - RESPIRATORY FAILURE [None]
